FAERS Safety Report 15576424 (Version 4)
Quarter: 2019Q1

REPORT INFORMATION
  Report Type: Spontaneous
  Country: US (occurrence: US)
  Receive Date: 20181101
  Receipt Date: 20190315
  Transmission Date: 20190417
  Serious: No
  Sender: FDA-Public Use
  Company Number: US-TEVA-2018-US-971014

PATIENT
  Age: 75 Year
  Sex: Female

DRUGS (10)
  1. CLONAZEPAM TEVA [Suspect]
     Active Substance: CLONAZEPAM
     Indication: ANXIETY
  2. METOPROLOL. [Concomitant]
     Active Substance: METOPROLOL
     Dosage: 75 MILLIGRAM DAILY;
  3. CLONAZEPAM TEVA [Suspect]
     Active Substance: CLONAZEPAM
     Indication: PANIC ATTACK
  4. CLONAZEPAM ACTAVIS [Suspect]
     Active Substance: CLONAZEPAM
     Indication: PANIC ATTACK
     Dosage: 3 MILLIGRAM DAILY;
     Dates: start: 20181126, end: 20181203
  5. SIMVASTATIN. [Concomitant]
     Active Substance: SIMVASTATIN
     Dosage: 120 MILLIGRAM DAILY;
  6. CLONAZEPAM ACTAVIS [Suspect]
     Active Substance: CLONAZEPAM
     Indication: NERVOUSNESS
  7. CLONAZEPAM ACTAVIS [Suspect]
     Active Substance: CLONAZEPAM
     Indication: DEPRESSION
  8. CLONAZEPAM TEVA [Suspect]
     Active Substance: CLONAZEPAM
     Indication: TINNITUS
  9. CLONAZEPAM ACTAVIS [Suspect]
     Active Substance: CLONAZEPAM
     Indication: ANXIETY
  10. CITALOPRAM [Concomitant]
     Active Substance: CITALOPRAM HYDROBROMIDE
     Dosage: 20 MILLIGRAM DAILY;

REACTIONS (5)
  - Paraesthesia oral [Unknown]
  - Dyspnoea [Not Recovered/Not Resolved]
  - Tongue discomfort [Not Recovered/Not Resolved]
  - Burning sensation [Unknown]
  - Tinnitus [Not Recovered/Not Resolved]
